FAERS Safety Report 15434874 (Version 1)
Quarter: 2018Q3

REPORT INFORMATION
  Report Type: Spontaneous
  Country: US (occurrence: US)
  Receive Date: 20180923
  Receipt Date: 20180923
  Transmission Date: 20181010
  Serious: No
  Sender: FDA-Public Use
  Company Number: None

PATIENT
  Age: 54 Year
  Sex: Female
  Weight: 51.75 kg

DRUGS (11)
  1. CRESTOR [Concomitant]
     Active Substance: ROSUVASTATIN CALCIUM
  2. MYRBETRIQ [Concomitant]
     Active Substance: MIRABEGRON
  3. PROGESTERONE. [Concomitant]
     Active Substance: PROGESTERONE
  4. VITAMIN D [Concomitant]
     Active Substance: CHOLECALCIFEROL
  5. NUVIGIL [Concomitant]
     Active Substance: ARMODAFINIL
  6. METHYLPHENIDATE (CONCERTA) [Concomitant]
  7. HORMONE PELLET BIO?T [Concomitant]
  8. VENLAFAXINE ER (EFFEXOR) [Concomitant]
  9. MULTIVITAMIN [Concomitant]
     Active Substance: VITAMINS
  10. MYRBETRIQ [Suspect]
     Active Substance: MIRABEGRON
     Indication: INCONTINENCE
     Dosage: ?          QUANTITY:1 DF DOSAGE FORM;?
     Route: 048
     Dates: start: 20170516
  11. METHYLPHENIDATE (RITALIN) [Concomitant]

REACTIONS (2)
  - Constipation [None]
  - Infrequent bowel movements [None]

NARRATIVE: CASE EVENT DATE: 20180801
